FAERS Safety Report 21205178 (Version 1)
Quarter: 2022Q3

REPORT INFORMATION
  Report Type: Spontaneous
  Country: ID (occurrence: ID)
  Receive Date: 20220812
  Receipt Date: 20220812
  Transmission Date: 20221026
  Serious: Yes (Other)
  Sender: FDA-Public Use
  Company Number: ID-PIRAMAL CRITICAL CARE LIMITED-2022-PEL-000429

PATIENT

DRUGS (3)
  1. ISOFLURANE [Suspect]
     Active Substance: ISOFLURANE
     Indication: Anaesthesia
     Dosage: UNK
  2. SUFENTANIL [Concomitant]
     Active Substance: SUFENTANIL
     Indication: Sedation
     Dosage: UNK
  3. PROPOFOL [Concomitant]
     Active Substance: PROPOFOL
     Indication: Product used for unknown indication
     Dosage: UNK
     Route: 065

REACTIONS (3)
  - Hypertension [Recovered/Resolved]
  - Drug ineffective [Recovered/Resolved]
  - Tachycardia [Recovered/Resolved]
